FAERS Safety Report 19504869 (Version 2)
Quarter: 2021Q3

REPORT INFORMATION
  Report Type: Other
  Country: US (occurrence: US)
  Receive Date: 20210708
  Receipt Date: 20210921
  Transmission Date: 20211014
  Serious: No
  Sender: FDA-Public Use
  Company Number: US-NEUROCRINE BIOSCIENCES INC.-2021NBI03392

PATIENT

DRUGS (5)
  1. CYMBALTA [Concomitant]
     Active Substance: DULOXETINE HYDROCHLORIDE
     Indication: AFFECTIVE DISORDER
     Dosage: 60 MILLIGRAM, QD
     Route: 048
     Dates: start: 2015
  2. TRAZODON [Concomitant]
     Active Substance: TRAZODONE HYDROCHLORIDE
     Indication: AFFECTIVE DISORDER
     Dosage: 100 MILLIGRAM, QHS
     Route: 048
     Dates: start: 2015
  3. GABAPENTIN. [Concomitant]
     Active Substance: GABAPENTIN
     Indication: AFFECTIVE DISORDER
     Dosage: 300 MILLIGRAM, QHS
     Route: 048
     Dates: start: 2016
  4. ZIPRASIDON [Concomitant]
     Active Substance: ZIPRASIDONE
     Indication: AFFECTIVE DISORDER
     Dosage: 40 MILLIGRAM, BID
     Route: 048
     Dates: start: 2015
  5. INGREZZA [Suspect]
     Active Substance: VALBENAZINE
     Indication: TARDIVE DYSKINESIA
     Dosage: 40 MILLIGRAM
     Route: 048
     Dates: start: 20210430, end: 202106

REACTIONS (1)
  - Skin swelling [Recovered/Resolved]

NARRATIVE: CASE EVENT DATE: 20210602
